FAERS Safety Report 9193788 (Version 1)
Quarter: 2013Q1

REPORT INFORMATION
  Report Type: Spontaneous
  Country: US (occurrence: US)
  Receive Date: 20130327
  Receipt Date: 20130327
  Transmission Date: 20140127
  Serious: Yes (Other)
  Sender: FDA-Public Use
  Company Number: US-PFIZER INC-2013093130

PATIENT
  Age: 14 Year
  Sex: Female

DRUGS (7)
  1. GEMCITABINE HYDROCHLORIDE [Suspect]
     Indication: SYNOVIAL SARCOMA
     Dosage: 900 MG/M2 ON DAYS 1 AND 8, 2 CYCLES AT 21 AND 28 DAYS
  2. DOCETAXEL [Concomitant]
     Indication: SYNOVIAL SARCOMA
     Dosage: 100 MG/M2 ON DAY 8, 2 CYCLES AT 21 AND 28 DAYS
  3. ADRIAMYCIN [Concomitant]
     Indication: SYNOVIAL SARCOMA
     Dosage: 37.5 MG/M2/DX2 D
  4. DEXAMETHASONE [Concomitant]
     Indication: SYNOVIAL SARCOMA
     Dosage: 10 MG, 1X/DAY
     Route: 042
  5. ETOPOSIDE [Concomitant]
     Indication: SYNOVIAL SARCOMA
     Dosage: 100 MG/M2/DX5 D
  6. IFOSFAMIDE [Concomitant]
     Indication: SYNOVIAL SARCOMA
     Dosage: 3 G/M2/DX3 D
  7. IFOSFAMIDE [Concomitant]
     Dosage: 1.8 G/M2/DX5 D

REACTIONS (2)
  - Compartment syndrome [Recovered/Resolved]
  - Myositis [Not Recovered/Not Resolved]
